FAERS Safety Report 12118981 (Version 2)
Quarter: 2016Q4

REPORT INFORMATION
  Report Type: Spontaneous
  Country: US (occurrence: US)
  Receive Date: 20160226
  Receipt Date: 20161214
  Transmission Date: 20170206
  Serious: No
  Sender: FDA-Public Use
  Company Number: US-PFIZER INC-2016078132

PATIENT
  Age: 62 Year
  Sex: Male
  Weight: 82 kg

DRUGS (18)
  1. WARFARIN [Concomitant]
     Active Substance: WARFARIN
     Indication: DEEP VEIN THROMBOSIS
     Dosage: 9 MG, 1X/DAY
     Route: 048
  2. LEVOTHYROXINE. [Concomitant]
     Active Substance: LEVOTHYROXINE
     Indication: THYROID DISORDER
     Dosage: 100 UG, 1X/DAY
  3. METOCLOPRAMIDE. [Concomitant]
     Active Substance: METOCLOPRAMIDE
     Dosage: 10 MG, AS NEEDED [UP TO THREE/DAY]
  4. PROSTATE SR [Concomitant]
     Indication: URINARY TRACT DISORDER
  5. GINKGO BILOBA [Concomitant]
     Active Substance: GINKGO
     Dosage: 120 MG, 1X/DAY
  6. LYRICA [Suspect]
     Active Substance: PREGABALIN
     Dosage: 300 MG, DAILY(1 PO IN AM AND 2 PO QHS] [2 AT NIGHT 1 AT MORNING])
     Route: 048
  7. MEXILETINE [Concomitant]
     Active Substance: MEXILETINE
     Indication: HEADACHE
     Dosage: UNK
  8. PROSTATE SR [Concomitant]
     Indication: SUPPLEMENTATION THERAPY
     Dosage: UNK
  9. FOLIC ACID. [Concomitant]
     Active Substance: FOLIC ACID
     Dosage: 800 UG, 1X/DAY
  10. LYRICA [Suspect]
     Active Substance: PREGABALIN
     Dosage: 25 MG, 2X/DAY
     Route: 048
  11. LYRICA [Suspect]
     Active Substance: PREGABALIN
     Dosage: 50 MG, 1X/DAY (25 MG: 2 MID-DAY DOSE)
  12. LISINOPRIL. [Concomitant]
     Active Substance: LISINOPRIL
     Indication: HEADACHE
     Dosage: UNK
  13. TIZANIDINE HCL [Concomitant]
     Active Substance: TIZANIDINE HYDROCHLORIDE
     Dosage: 4 MG, AS NEEDED [UP TO THREE/DAY]
  14. LYRICA [Suspect]
     Active Substance: PREGABALIN
     Indication: HEADACHE
     Dosage: 200 MG, 2X/DAY
  15. LYRICA [Suspect]
     Active Substance: PREGABALIN
     Dosage: 200 MG, UNK (BEDTIME)
  16. LYRICA [Suspect]
     Active Substance: PREGABALIN
     Dosage: 400 MG, 1X/DAY (COMBINATION OF 100MG, 50MG, 25 MG, TOTAL OF 400MG)
  17. LYRICA [Suspect]
     Active Substance: PREGABALIN
     Dosage: 50 MG, DAILY [1 MID-DAY DOSE]
     Route: 048
  18. THERALITH XR [Concomitant]
     Indication: SUPPLEMENTATION THERAPY
     Dosage: UNK

REACTIONS (6)
  - Headache [Not Recovered/Not Resolved]
  - Drug dose omission [Recovered/Resolved]
  - Withdrawal syndrome [Unknown]
  - Intentional product use issue [Not Recovered/Not Resolved]
  - Speech disorder [Not Recovered/Not Resolved]
  - Nausea [Recovered/Resolved]

NARRATIVE: CASE EVENT DATE: 201601
